FAERS Safety Report 9114034 (Version 1)
Quarter: 2013Q1

REPORT INFORMATION
  Report Type: Spontaneous
  Country: US (occurrence: US)
  Receive Date: 20130208
  Receipt Date: 20130208
  Transmission Date: 20140127
  Serious: No
  Sender: FDA-Public Use
  Company Number: US-ASTRAZENECA-2013SE05990

PATIENT
  Age: 57 Year
  Sex: Female

DRUGS (2)
  1. SEROQUEL [Suspect]
     Route: 048
     Dates: start: 2008
  2. LOT OF DIFFERENT MEDICATIONS [Concomitant]

REACTIONS (2)
  - Mental impairment [Unknown]
  - Drug ineffective [Unknown]
